FAERS Safety Report 13877123 (Version 2)
Quarter: 2017Q4

REPORT INFORMATION
  Report Type: Report from Study
  Country: AU (occurrence: AU)
  Receive Date: 20170817
  Receipt Date: 20171025
  Transmission Date: 20180320
  Serious: Yes (Death, Hospitalization, Other)
  Sender: FDA-Public Use
  Company Number: AU-GLAXOSMITHKLINE-AU2017GSK124710

PATIENT
  Sex: Female

DRUGS (2)
  1. EPOPROSTENOL SODIUM. [Suspect]
     Active Substance: EPOPROSTENOL SODIUM
     Indication: PRODUCT USED FOR UNKNOWN INDICATION
     Dosage: 1.5 MG, UNK
  2. FLOLAN [Suspect]
     Active Substance: EPOPROSTENOL SODIUM
     Dosage: 1.5 MG, UNK

REACTIONS (1)
  - Death [Fatal]

NARRATIVE: CASE EVENT DATE: 2017
